FAERS Safety Report 8553797-3 (Version None)
Quarter: 2012Q3

REPORT INFORMATION
  Report Type: 
  Country: None (occurrence: None)
  Receive Date: 20120725
  Receipt Date: 20120725
  Transmission Date: 20120928
  Serious: Yes (Other)
  Sender: FDA-Public Use
  Company Number: None

PATIENT
  Sex: Male

DRUGS (2)
  1. ARIPIPRAZOLE [Suspect]
     Indication: DEPRESSION
     Dosage: 10MG DAILY PO
     Route: 048
     Dates: start: 20120102, end: 20120702
  2. ARIPIPRAZOLE [Suspect]
     Indication: BIPOLAR DISORDER
     Dosage: 10MG DAILY PO
     Route: 048
     Dates: start: 20120102, end: 20120702

REACTIONS (1)
  - BLOOD GLUCOSE INCREASED [None]
